FAERS Safety Report 9631498 (Version 4)
Quarter: 2014Q1

REPORT INFORMATION
  Report Type: Spontaneous
  Country: US (occurrence: US)
  Receive Date: 20131018
  Receipt Date: 20140102
  Transmission Date: 20141002
  Serious: No
  Sender: FDA-Public Use
  Company Number: US-PFIZER INC-2013298803

PATIENT
  Sex: Female

DRUGS (1)
  1. EFFEXOR XR [Suspect]
     Dosage: UNK

REACTIONS (1)
  - Malaise [Unknown]
